FAERS Safety Report 7738072-9 (Version None)
Quarter: 2011Q3

REPORT INFORMATION
  Report Type: 
  Country: None (occurrence: None)
  Receive Date: 20110908
  Receipt Date: 20110824
  Transmission Date: 20111222
  Serious: Yes (Other)
  Sender: FDA-Public Use
  Company Number: NO-BAYER-2011-076660

PATIENT
  Sex: Male

DRUGS (1)
  1. CLOTRIMAZOLE [Suspect]

REACTIONS (1)
  - HYPOACUSIS [None]
